FAERS Safety Report 5513018-2 (Version None)
Quarter: 2007Q4

REPORT INFORMATION
  Report Type: 
  Country: None (occurrence: None)
  Receive Date: 20071112
  Receipt Date: 20071102
  Transmission Date: 20080405
  Serious: Yes (Hospitalization, Other)
  Sender: FDA-Public Use
  Company Number: CA-ABBOTT-07P-028-0417281-00

PATIENT
  Sex: Female
  Weight: 79.45 kg

DRUGS (7)
  1. HUMIRA [Suspect]
     Indication: RHEUMATOID ARTHRITIS
     Route: 058
     Dates: start: 20060405
  2. HUMIRA [Suspect]
     Dates: start: 20071101
  3. FOLIC ACID [Concomitant]
     Indication: DRUG USE FOR UNKNOWN INDICATION
  4. MELOXICAM [Concomitant]
     Indication: DRUG USE FOR UNKNOWN INDICATION
  5. TYLENOL XS [Concomitant]
     Indication: DRUG USE FOR UNKNOWN INDICATION
  6. CORTISONE ACETATE TAB [Concomitant]
     Indication: DRUG USE FOR UNKNOWN INDICATION
     Route: 050
  7. AMITRIPTYLINE HCL [Concomitant]
     Indication: DRUG USE FOR UNKNOWN INDICATION

REACTIONS (5)
  - FINGER REPAIR OPERATION [None]
  - JOINT SWELLING [None]
  - OEDEMA PERIPHERAL [None]
  - RHEUMATOID ARTHRITIS [None]
  - TENDON OPERATION [None]
